FAERS Safety Report 15969578 (Version 6)
Quarter: 2022Q1

REPORT INFORMATION
  Report Type: Spontaneous
  Country: US (occurrence: None)
  Receive Date: 20190215
  Receipt Date: 20220322
  Transmission Date: 20220423
  Serious: Yes (Other)
  Sender: FDA-Public Use
  Company Number: 2018SF64858

PATIENT
  Age: 28 Year
  Sex: Female

DRUGS (52)
  1. NEXIUM [Suspect]
     Active Substance: ESOMEPRAZOLE MAGNESIUM
     Indication: Oesophageal ulcer
     Route: 048
     Dates: start: 20010220, end: 20050101
  2. NEXIUM [Suspect]
     Active Substance: ESOMEPRAZOLE MAGNESIUM
     Indication: Gastric ulcer
     Route: 048
     Dates: start: 20010220, end: 20050101
  3. NEXIUM [Suspect]
     Active Substance: ESOMEPRAZOLE MAGNESIUM
     Indication: Oesophageal ulcer
     Route: 048
     Dates: start: 20010220, end: 20050101
  4. NEXIUM [Suspect]
     Active Substance: ESOMEPRAZOLE MAGNESIUM
     Indication: Gastric ulcer
     Route: 048
     Dates: start: 20010220, end: 20050101
  5. NEXIUM 24HR [Suspect]
     Active Substance: ESOMEPRAZOLE MAGNESIUM
     Route: 048
  6. PRILOSEC [Suspect]
     Active Substance: OMEPRAZOLE MAGNESIUM
     Indication: Oesophageal ulcer
     Route: 048
     Dates: start: 19920101, end: 19971231
  7. PRILOSEC [Suspect]
     Active Substance: OMEPRAZOLE MAGNESIUM
     Indication: Gastric ulcer
     Route: 048
     Dates: start: 19920101, end: 19971231
  8. PRILOSEC OTC [Suspect]
     Active Substance: OMEPRAZOLE MAGNESIUM
     Indication: Oesophageal ulcer
     Route: 048
     Dates: start: 2003, end: 2016
  9. PRILOSEC OTC [Suspect]
     Active Substance: OMEPRAZOLE MAGNESIUM
     Indication: Gastric ulcer
     Route: 048
     Dates: start: 2003, end: 2016
  10. DEXILANT [Suspect]
     Active Substance: DEXLANSOPRAZOLE
     Indication: Oesophageal ulcer
     Route: 065
     Dates: start: 20090130, end: 20171231
  11. DEXILANT [Suspect]
     Active Substance: DEXLANSOPRAZOLE
     Indication: Gastric ulcer
     Route: 065
     Dates: start: 20090130, end: 20171231
  12. DEXILANT [Suspect]
     Active Substance: DEXLANSOPRAZOLE
     Indication: Oesophageal ulcer
     Route: 065
  13. DEXILANT [Suspect]
     Active Substance: DEXLANSOPRAZOLE
     Indication: Gastric ulcer
     Route: 065
  14. DEXILANT [Suspect]
     Active Substance: DEXLANSOPRAZOLE
     Indication: Oesophageal ulcer
     Route: 065
     Dates: start: 20090130, end: 20171231
  15. DEXILANT [Suspect]
     Active Substance: DEXLANSOPRAZOLE
     Indication: Gastric ulcer
     Route: 065
     Dates: start: 20090130, end: 20171231
  16. PREVACID [Suspect]
     Active Substance: LANSOPRAZOLE
     Indication: Gastric ulcer
     Route: 065
     Dates: start: 19950510, end: 19991231
  17. PREVACID [Suspect]
     Active Substance: LANSOPRAZOLE
     Indication: Oesophageal ulcer
     Route: 065
     Dates: start: 19950510, end: 19991231
  18. PREVACID [Suspect]
     Active Substance: LANSOPRAZOLE
     Indication: Gastric ulcer
     Route: 065
     Dates: start: 19950510, end: 19991231
  19. PREVACID [Suspect]
     Active Substance: LANSOPRAZOLE
     Indication: Oesophageal ulcer
     Route: 065
     Dates: start: 19950510, end: 19991231
  20. PREVACID 24 HR [Suspect]
     Active Substance: LANSOPRAZOLE
     Route: 065
  21. PROTONIX [Suspect]
     Active Substance: PANTOPRAZOLE SODIUM
     Indication: Oesophageal ulcer
     Route: 065
     Dates: start: 20030101, end: 20051231
  22. PROTONIX [Suspect]
     Active Substance: PANTOPRAZOLE SODIUM
     Indication: Gastric ulcer
     Route: 065
     Dates: start: 20030101, end: 20051231
  23. PROTONIX [Suspect]
     Active Substance: PANTOPRAZOLE SODIUM
     Indication: Oesophageal ulcer
     Route: 065
     Dates: start: 20030101, end: 20051231
  24. PROTONIX [Suspect]
     Active Substance: PANTOPRAZOLE SODIUM
     Indication: Gastric ulcer
     Route: 065
     Dates: start: 20030101, end: 20051231
  25. ZEGERID [Suspect]
     Active Substance: OMEPRAZOLE\SODIUM BICARBONATE
     Route: 065
  26. ESCIN/LEVOTHYROXINE [Concomitant]
  27. HYDROXYZINE HYDROCHLORIDE [Concomitant]
     Active Substance: HYDROXYZINE HYDROCHLORIDE
  28. DEXTROAMPHETAMINE [Concomitant]
     Active Substance: DEXTROAMPHETAMINE
  29. HYDROXYZINE [Concomitant]
     Active Substance: HYDROXYZINE HYDROCHLORIDE
  30. DIVALPROEX SODIUM [Concomitant]
     Active Substance: DIVALPROEX SODIUM
  31. CYANOCOBALAMIN [Concomitant]
     Active Substance: CYANOCOBALAMIN
  32. BUPROPION [Concomitant]
     Active Substance: BUPROPION
  33. RANITIDINE [Concomitant]
     Active Substance: RANITIDINE
  34. LITHIUM CARBONATE [Concomitant]
     Active Substance: LITHIUM CARBONATE
  35. TOBRAMYCIN AND DEXAMETHASONE [Concomitant]
     Active Substance: DEXAMETHASONE\TOBRAMYCIN
  36. CLONAZEPAM [Concomitant]
     Active Substance: CLONAZEPAM
  37. ZOLPIDEM [Concomitant]
     Active Substance: ZOLPIDEM TARTRATE
  38. PROAIR HFA [Concomitant]
     Active Substance: ALBUTEROL SULFATE
  39. ONDANSETRON [Concomitant]
     Active Substance: ONDANSETRON
  40. ACETAMINOPHEN/COD [Concomitant]
  41. LAMOTRIGINE [Concomitant]
     Active Substance: LAMOTRIGINE
  42. ACIPHEX [Concomitant]
     Active Substance: RABEPRAZOLE SODIUM
  43. VENTOLIN [Concomitant]
     Active Substance: ALBUTEROL SULFATE
  44. ADVAIR DISKUS [Concomitant]
     Active Substance: FLUTICASONE PROPIONATE\SALMETEROL XINAFOATE
  45. NAPROXEN [Concomitant]
     Active Substance: NAPROXEN
  46. ACETAMINOPHEN\HYDROCODONE BITARTRATE [Concomitant]
     Active Substance: ACETAMINOPHEN\HYDROCODONE BITARTRATE
  47. MUCINEX [Concomitant]
     Active Substance: GUAIFENESIN
  48. PRAMIPEXOLE [Concomitant]
     Active Substance: PRAMIPEXOLE
  49. OXYCONTIN [Concomitant]
     Active Substance: OXYCODONE HYDROCHLORIDE
  50. ROBAXIN [Concomitant]
     Active Substance: METHOCARBAMOL
  51. TRILEPTAL [Concomitant]
     Active Substance: OXCARBAZEPINE
  52. DESYREL [Concomitant]
     Active Substance: TRAZODONE HYDROCHLORIDE

REACTIONS (4)
  - Chronic kidney disease [Unknown]
  - Renal injury [Unknown]
  - Renal failure [Not Recovered/Not Resolved]
  - Acute kidney injury [Not Recovered/Not Resolved]

NARRATIVE: CASE EVENT DATE: 20030101
